FAERS Safety Report 14988994 (Version 8)
Quarter: 2019Q2

REPORT INFORMATION
  Report Type: Spontaneous
  Country: CA (occurrence: CA)
  Receive Date: 20180608
  Receipt Date: 20190606
  Transmission Date: 20190711
  Serious: Yes (Hospitalization, Other)
  Sender: FDA-Public Use
  Company Number: CA-CELLTRION INC.-2017CA015749

PATIENT

DRUGS (17)
  1. VITAMIN D [Concomitant]
     Active Substance: VITAMIN D NOS
     Dosage: UNK, DAILY
     Route: 048
  2. MIRENA [Concomitant]
     Active Substance: LEVONORGESTREL
     Dosage: UNK
     Route: 015
  3. INFLECTRA [Suspect]
     Active Substance: INFLIXIMAB-DYYB
     Dosage: 300 MG, (EVERY 8 WEEKS)
     Route: 042
     Dates: start: 20180530
  4. INFLECTRA [Suspect]
     Active Substance: INFLIXIMAB-DYYB
     Indication: CROHN^S DISEASE
     Dosage: 300 MG,  (EVERY 8 WEEKS)
     Route: 042
     Dates: start: 20170829
  5. INFLECTRA [Suspect]
     Active Substance: INFLIXIMAB-DYYB
     Dosage: 300 MG, (EVERY 8 WEEKS)
     Route: 042
     Dates: start: 20180406
  6. CELECOXIB. [Suspect]
     Active Substance: CELECOXIB
     Indication: CROHN^S DISEASE
     Dosage: UNK, AS NEEDED
     Route: 065
     Dates: start: 201409
  7. CELECOXIB. [Suspect]
     Active Substance: CELECOXIB
     Indication: ANKYLOSING SPONDYLITIS
     Dosage: UNK
  8. MULTIVITAMIN [Concomitant]
     Active Substance: VITAMINS
     Dosage: UNK, 1X/DAY
     Route: 048
  9. INFLECTRA [Suspect]
     Active Substance: INFLIXIMAB-DYYB
     Dosage: 300 MG, (EVERY 8 WEEKS)
     Route: 042
     Dates: start: 20181119
  10. AZATHIOPRINE. [Concomitant]
     Active Substance: AZATHIOPRINE
     Dosage: 100 MG, 1X/DAY
     Route: 048
     Dates: start: 201407
  11. MULTIVITAMIN [Concomitant]
     Active Substance: VITAMINS
     Dosage: UNK, 1X/DAY
     Route: 048
  12. VITAMIN D [Concomitant]
     Active Substance: VITAMIN D NOS
     Dosage: UNK, DAILY
     Route: 048
  13. MIRENA [Concomitant]
     Active Substance: LEVONORGESTREL
     Dosage: UNK
     Route: 015
  14. INFLECTRA [Suspect]
     Active Substance: INFLIXIMAB-DYYB
     Dosage: 300 MG, (EVERY 8 WEEKS)
     Route: 042
     Dates: start: 20180213, end: 20180213
  15. INFLECTRA [Suspect]
     Active Substance: INFLIXIMAB-DYYB
     Dosage: 300 MG, (EVERY 8 WEEKS)
     Route: 042
     Dates: start: 20180530
  16. INFLECTRA [Suspect]
     Active Substance: INFLIXIMAB-DYYB
     Dosage: 300 MG,  (EVERY 8 WEEKS)
     Route: 042
     Dates: start: 20180918
  17. INFLECTRA [Suspect]
     Active Substance: INFLIXIMAB-DYYB
     Dosage: 300 MG, (EVERY 8 WEEKS)
     Route: 042
     Dates: start: 20190325

REACTIONS (13)
  - Off label use [Unknown]
  - Lactic acidosis [Recovered/Resolved]
  - Sensory loss [Not Recovered/Not Resolved]
  - Diarrhoea [Recovered/Resolved]
  - Intestinal obstruction [Recovered/Resolved]
  - Flushing [Recovered/Resolved]
  - Dermatitis [Recovered/Resolved]
  - Condition aggravated [Unknown]
  - Paraesthesia oral [Recovered/Resolved]
  - Paraesthesia [Not Recovered/Not Resolved]
  - Abdominal discomfort [Recovered/Resolved]
  - Abdominal distension [Recovered/Resolved]
  - Abdominal adhesions [Recovered/Resolved]

NARRATIVE: CASE EVENT DATE: 201710
